FAERS Safety Report 25998157 (Version 1)
Quarter: 2025Q4

REPORT INFORMATION
  Report Type: Spontaneous
  Country: EU (occurrence: EU)
  Receive Date: 20251105
  Receipt Date: 20251105
  Transmission Date: 20260117
  Serious: Yes (Hospitalization, Other)
  Sender: ACCORD
  Company Number: EU-Accord-020225

PATIENT
  Age: 64 Year
  Sex: Female

DRUGS (4)
  1. IRINOTECAN HYDROCHLORIDE [Suspect]
     Active Substance: IRINOTECAN HYDROCHLORIDE
     Indication: Metastases to liver
     Dates: start: 2011
  2. OXALIPLATIN [Suspect]
     Active Substance: OXALIPLATIN
     Indication: Metastases to liver
     Dates: start: 2010
  3. CAPECITABINE [Suspect]
     Active Substance: CAPECITABINE
     Indication: Metastases to liver
     Dates: start: 2010
  4. CETUXIMAB [Suspect]
     Active Substance: CETUXIMAB
     Indication: Metastases to liver

REACTIONS (6)
  - Fatigue [Recovering/Resolving]
  - Dyspnoea [Recovering/Resolving]
  - Nausea [Recovering/Resolving]
  - Vomiting [Recovering/Resolving]
  - Abdominal pain upper [Unknown]
  - Hepatic failure [Unknown]
